FAERS Safety Report 8548927-3 (Version None)
Quarter: 2012Q3

REPORT INFORMATION
  Report Type: 
  Country: None (occurrence: None)
  Receive Date: 20120730
  Receipt Date: 20120726
  Transmission Date: 20120928
  Serious: Yes (Other)
  Sender: FDA-Public Use
  Company Number: PHHY2012CA026112

PATIENT
  Sex: Male

DRUGS (11)
  1. PROCYCLIDINE HYDROCHLORIDE 2MG TAB [Concomitant]
  2. SPIRONOLACTONE [Concomitant]
  3. SANDOSTATIN LAR [Suspect]
     Indication: NEUROENDOCRINE CARCINOMA METASTATIC
     Dosage: 30 MG, EVERY 4 WEEKS
     Route: 030
     Dates: start: 20101025, end: 20120402
  4. FOLIC ACID [Concomitant]
  5. PREPHANAZINE [Concomitant]
  6. FUROSEMIDE [Concomitant]
  7. MULTI-VITAMINS [Concomitant]
  8. VITAMIN B1 TAB [Concomitant]
  9. PANTOPRAZOLE [Concomitant]
  10. ZOPICLONE [Concomitant]
  11. IRON [Concomitant]

REACTIONS (4)
  - JAUNDICE CHOLESTATIC [None]
  - PLATELET COUNT INCREASED [None]
  - HAEMORRHAGE [None]
  - NEOPLASM MALIGNANT [None]
